FAERS Safety Report 22198451 (Version 1)
Quarter: 2023Q2

REPORT INFORMATION
  Report Type: Spontaneous
  Country: CN (occurrence: CN)
  Receive Date: 20230411
  Receipt Date: 20230411
  Transmission Date: 20230722
  Serious: Yes (Death, Other)
  Sender: FDA-Public Use
  Company Number: CN-AMGEN-CHNSP2023059416

PATIENT

DRUGS (1)
  1. FILGRASTIM [Suspect]
     Active Substance: FILGRASTIM
     Indication: Allogenic stem cell transplantation
     Dosage: 5 MICROGRAM/KILOGRAM FOR 5 DAYS
     Route: 065

REACTIONS (2)
  - Death [Fatal]
  - Acute myeloid leukaemia recurrent [Fatal]
